FAERS Safety Report 7604690-1 (Version None)
Quarter: 2011Q3

REPORT INFORMATION
  Report Type: 
  Country: None (occurrence: None)
  Receive Date: 20110712
  Receipt Date: 20110629
  Transmission Date: 20111222
  Serious: Yes (Congenital Anomaly, Other)
  Sender: FDA-Public Use
  Company Number: DE-MYLANLABS-2011S1013448

PATIENT
  Age: 0 Year
  Sex: Female
  Weight: 2.62 kg

DRUGS (1)
  1. FLUOXETINE HCL [Suspect]
     Dosage: 20 [MG/D ]
     Route: 063
     Dates: start: 20090702, end: 20100331

REACTIONS (4)
  - PATENT DUCTUS ARTERIOSUS [None]
  - ATRIAL SEPTAL DEFECT [None]
  - SMALL FOR DATES BABY [None]
  - MATERNAL EXPOSURE DURING PREGNANCY [None]
